FAERS Safety Report 10135831 (Version 2)
Quarter: 2014Q2

REPORT INFORMATION
  Report Type: Report from Study
  Country: VE (occurrence: VE)
  Receive Date: 20140428
  Receipt Date: 20140530
  Transmission Date: 20141212
  Serious: Yes (Hospitalization, Other)
  Sender: FDA-Public Use
  Company Number: PHHY2014VE051392

PATIENT
  Sex: Female

DRUGS (3)
  1. LEPONEX / CLOZARIL (CLOZAPINE) [Suspect]
     Indication: SCHIZOAFFECTIVE DISORDER
     Dosage: 225 MG, DAILY
     Route: 048
  2. LEPONEX / CLOZARIL (CLOZAPINE) [Suspect]
     Dosage: UNK UKN, UNK (DOSE INCREASED)
  3. LEPONEX / CLOZARIL (CLOZAPINE) [Suspect]
     Dosage: UNK UKN, UNK

REACTIONS (3)
  - Psychiatric decompensation [Recovered/Resolved]
  - Aggression [Recovered/Resolved]
  - Pancreatitis [Recovered/Resolved]
